FAERS Safety Report 8314225-6 (Version None)
Quarter: 2012Q2

REPORT INFORMATION
  Report Type: 
  Country: None (occurrence: None)
  Receive Date: 20120426
  Receipt Date: 20120423
  Transmission Date: 20120825
  Serious: Yes (Life-Threatening, Other)
  Sender: FDA-Public Use
  Company Number: DE-B.I. PHARMACEUTICALS,INC./RIDGEFIELD-2012-DE-00451DE

PATIENT
  Sex: Male
  Weight: 58 kg

DRUGS (9)
  1. METOPROLOL TARTRATE [Concomitant]
     Indication: ATRIAL FIBRILLATION
  2. HYDROCHLOROTHIAZIDE [Concomitant]
     Indication: HYPERTENSION
     Dosage: 12.5 MG
  3. CITALOPRAM HYDROBROMIDE [Concomitant]
     Indication: DEPRESSION
     Dosage: 20 MG
  4. DIGOXIN [Concomitant]
     Indication: ATRIAL FIBRILLATION
     Dosage: 0.2 MG
     Dates: start: 20120105
  5. ALLOPURINOL [Concomitant]
     Indication: HYPERURICAEMIA
     Dosage: 150 MG
  6. PRADAXA [Suspect]
     Indication: ATRIAL FIBRILLATION
     Dosage: 220 MG
     Dates: start: 20120106, end: 20120118
  7. NITRENDIPIN [Concomitant]
     Indication: HYPERTENSION
     Dosage: 20 MG
  8. METOPROLOL TARTRATE [Concomitant]
     Indication: HYPERTENSION
     Dosage: 200 MG
  9. LISINOPRIL [Concomitant]
     Indication: HYPERTENSION
     Dosage: 20 MG

REACTIONS (4)
  - GASTRITIS EROSIVE [None]
  - RENAL FAILURE [None]
  - BLOOD CREATININE INCREASED [None]
  - BRONCHIAL CARCINOMA [None]
